FAERS Safety Report 7028217-0 (Version None)
Quarter: 2010Q4

REPORT INFORMATION
  Report Type: 
  Country: None (occurrence: None)
  Receive Date: 20101005
  Receipt Date: 20100928
  Transmission Date: 20110411
  Serious: Yes (Other)
  Sender: FDA-Public Use
  Company Number: US-ABBOTT-10P-163-0663650-00

PATIENT
  Sex: Female
  Weight: 104.42 kg

DRUGS (3)
  1. HUMIRA [Suspect]
     Indication: PRODUCT USED FOR UNKNOWN INDICATION
     Dates: start: 20060401, end: 20071010
  2. HUMIRA [Suspect]
  3. PREDNISONE [Concomitant]
     Indication: CROHN'S DISEASE

REACTIONS (2)
  - AMENORRHOEA [None]
  - PITUITARY TUMOUR [None]
